FAERS Safety Report 21607874 (Version 2)
Quarter: 2022Q4

REPORT INFORMATION
  Report Type: Spontaneous
  Country: US (occurrence: US)
  Receive Date: 20221117
  Receipt Date: 20221202
  Transmission Date: 20230113
  Serious: No
  Sender: FDA-Public Use
  Company Number: US-IDORSIA-001998-2022-US

PATIENT
  Age: 55 Year
  Sex: Female

DRUGS (5)
  1. QUVIVIQ [Suspect]
     Active Substance: DARIDOREXANT
     Indication: Insomnia
     Dosage: 50 MG, QD
     Route: 048
     Dates: start: 20221105, end: 20221106
  2. TIZANIDINE [Concomitant]
     Active Substance: TIZANIDINE
  3. XANAX [Concomitant]
     Active Substance: ALPRAZOLAM
  4. AIMOVIG [Concomitant]
     Active Substance: ERENUMAB-AOOE
     Indication: Migraine
     Dosage: 1 DOSAGE FORM, Q1MONTH
  5. NURTEC ODT [Concomitant]
     Active Substance: RIMEGEPANT SULFATE
     Indication: Migraine

REACTIONS (10)
  - Sleep paralysis [Recovered/Resolved]
  - Hypersensitivity [Recovered/Resolved]
  - Dyspnoea [Recovered/Resolved]
  - Vertigo [Recovered/Resolved]
  - Dyskinesia [Recovered/Resolved]
  - Aphasia [Recovered/Resolved]
  - Freezing phenomenon [Recovered/Resolved]
  - Gait disturbance [Recovered/Resolved]
  - Muscle rigidity [Recovered/Resolved]
  - Drug ineffective [Unknown]

NARRATIVE: CASE EVENT DATE: 20221106
